FAERS Safety Report 18369263 (Version 2)
Quarter: 2022Q4

REPORT INFORMATION
  Report Type: Spontaneous
  Country: US (occurrence: US)
  Receive Date: 20201012
  Receipt Date: 20221013
  Transmission Date: 20230113
  Serious: Yes (Hospitalization)
  Sender: FDA-Public Use
  Company Number: US-CELLTRION INC.-2019US025322

PATIENT

DRUGS (2)
  1. INFLECTRA [Suspect]
     Active Substance: INFLIXIMAB-DYYB
     Indication: Hidradenitis
     Dosage: UNK, 1ST INFUSION
     Route: 065
     Dates: start: 20190908
  2. INFLECTRA [Suspect]
     Active Substance: INFLIXIMAB-DYYB
     Dosage: UNK, 2ND INFUSION
     Route: 065
     Dates: start: 20190917

REACTIONS (6)
  - Cellulitis [Recovered/Resolved]
  - Sepsis [Recovered/Resolved]
  - Decreased immune responsiveness [Unknown]
  - Limb mass [Unknown]
  - Product use in unapproved indication [Unknown]
  - Drug effective for unapproved indication [Unknown]

NARRATIVE: CASE EVENT DATE: 20190901
